FAERS Safety Report 7452180-1 (Version None)
Quarter: 2011Q2

REPORT INFORMATION
  Report Type: 
  Country: None (occurrence: None)
  Receive Date: 20110425
  Receipt Date: 20110412
  Transmission Date: 20111010
  Serious: Yes (Other)
  Sender: FDA-Public Use
  Company Number: 2011AM004256

PATIENT
  Age: 53 Year
  Sex: Female
  Weight: 83.0083 kg

DRUGS (8)
  1. PREMARIN [Concomitant]
  2. NOVOLOG [Concomitant]
  3. NEXIUM [Concomitant]
  4. ESCITALOPRAM [Concomitant]
  5. SYMLIN [Suspect]
     Indication: TYPE 2 DIABETES MELLITUS
     Dosage: SC
     Route: 058
     Dates: start: 20110322
  6. COZAAR [Concomitant]
  7. INSULIN [Concomitant]
  8. LANTUS [Concomitant]

REACTIONS (3)
  - DRUG HYPERSENSITIVITY [None]
  - DYSPNOEA [None]
  - ANGIOEDEMA [None]
